FAERS Safety Report 7045848-2 (Version None)
Quarter: 2010Q4

REPORT INFORMATION
  Report Type: 
  Country: None (occurrence: None)
  Receive Date: 20101012
  Receipt Date: 20101012
  Transmission Date: 20110411
  Serious: Yes (Hospitalization)
  Sender: FDA-Public Use
  Company Number: None

PATIENT
  Sex: Male
  Weight: 116 kg

DRUGS (1)
  1. HUMULIN R [Suspect]
     Indication: HYPERGLYCAEMIA
     Dosage: 100 UNITS CONTINUOUS IV DRIP
     Route: 041
     Dates: start: 20101008, end: 20101012

REACTIONS (2)
  - BLOOD GLUCOSE INCREASED [None]
  - PRODUCT QUALITY ISSUE [None]
